FAERS Safety Report 9929388 (Version 1)
Quarter: 2014Q1

REPORT INFORMATION
  Report Type: Spontaneous
  Country: SE (occurrence: SE)
  Receive Date: 20140227
  Receipt Date: 20140227
  Transmission Date: 20141002
  Serious: Yes (Life-Threatening, Hospitalization)
  Sender: FDA-Public Use
  Company Number: SE-WATSON-2014-03329

PATIENT
  Age: 83 Year
  Sex: Female

DRUGS (3)
  1. CITALOPRAM ACTAVIS [Suspect]
     Indication: DEPRESSED MOOD
     Dosage: UNK
     Route: 065
     Dates: start: 20131025, end: 20131115
  2. TRAMADOL /00599202/ [Interacting]
     Indication: PRODUCT USED FOR UNKNOWN INDICATION
     Dosage: UNK; TRAMADOL AUROBINDO
     Route: 065
     Dates: start: 20131112, end: 20131115
  3. TRAMADOL HEXAL [Concomitant]
     Indication: PRODUCT USED FOR UNKNOWN INDICATION
     Dosage: UNK; 1X1-2 TIMES A DAY
     Route: 048
     Dates: end: 20131112

REACTIONS (2)
  - Serotonin syndrome [Recovered/Resolved]
  - Drug interaction [Recovered/Resolved]
